FAERS Safety Report 23944579 (Version 2)
Quarter: 2024Q3

REPORT INFORMATION
  Report Type: Report from Study
  Country: IT (occurrence: IT)
  Receive Date: 20240606
  Receipt Date: 20240927
  Transmission Date: 20241017
  Serious: Yes (Other)
  Sender: RANBAXY
  Company Number: IT-SUN PHARMACEUTICAL INDUSTRIES LTD-2024R1-449621

PATIENT
  Sex: Female

DRUGS (1)
  1. PAZOPANIB [Suspect]
     Active Substance: PAZOPANIB
     Indication: Metastatic uterine cancer
     Dosage: 800 MILLIGRAM, DAILY
     Route: 065

REACTIONS (2)
  - Hepatotoxicity [Unknown]
  - Toxicity to various agents [Unknown]
